FAERS Safety Report 10770941 (Version 1)
Quarter: 2015Q1

REPORT INFORMATION
  Report Type: Spontaneous
  Country: US (occurrence: US)
  Receive Date: 20150206
  Receipt Date: 20150206
  Transmission Date: 20150721
  Serious: No
  Sender: FDA-Public Use
  Company Number: US-BAYER-2015-018337

PATIENT
  Sex: Female

DRUGS (2)
  1. ANGELIQ [Suspect]
     Active Substance: DROSPIRENONE\ESTRADIOL
     Indication: HOT FLUSH
     Dosage: UNK
     Route: 048
     Dates: start: 20150202
  2. ANGELIQ [Suspect]
     Active Substance: DROSPIRENONE\ESTRADIOL
     Indication: MOOD SWINGS

REACTIONS (2)
  - Feeling abnormal [None]
  - Drug ineffective [None]
